FAERS Safety Report 24428518 (Version 1)
Quarter: 2024Q4

REPORT INFORMATION
  Report Type: Other
  Country: IL (occurrence: IL)
  Receive Date: 20241011
  Receipt Date: 20241011
  Transmission Date: 20250114
  Serious: Yes (Hospitalization)
  Sender: KNIGHT THERAPEUTICS
  Company Number: IL-Knight Therapeutics (USA) Inc.-2162869

PATIENT
  Sex: Male

DRUGS (1)
  1. IMPAVIDO [Suspect]
     Active Substance: MILTEFOSINE
     Indication: Mucocutaneous leishmaniasis

REACTIONS (3)
  - Sacroiliitis [Unknown]
  - Musculoskeletal pain [Unknown]
  - Arthritis [Recovered/Resolved]
